FAERS Safety Report 9013391 (Version 1)
Quarter: 2013Q1

REPORT INFORMATION
  Report Type: Spontaneous
  Country: US (occurrence: None)
  Receive Date: 20130107
  Receipt Date: 20130107
  Transmission Date: 20140127
  Serious: No
  Sender: FDA-Public Use
  Company Number: None

PATIENT
  Sex: Female
  Weight: 29.3 kg

DRUGS (1)
  1. RISPERIDONE [Suspect]
     Indication: INTERMITTENT EXPLOSIVE DISORDER
     Dosage: RISPERIDONE 2MG DAILY ORAL
     Route: 048
     Dates: start: 20120727

REACTIONS (3)
  - Product substitution issue [None]
  - Intermittent explosive disorder [None]
  - Condition aggravated [None]
